FAERS Safety Report 9402651 (Version 2)
Quarter: 2013Q3

REPORT INFORMATION
  Report Type: Report from Study
  Country: US (occurrence: US)
  Receive Date: 20130716
  Receipt Date: 20130722
  Transmission Date: 20140515
  Serious: No
  Sender: FDA-Public Use
  Company Number: US-VERTEX PHARMACEUTICALS INC-2013-007976

PATIENT
  Age: 18 Year
  Sex: Male
  Weight: 60 kg

DRUGS (8)
  1. VX-770 [Suspect]
     Indication: CYSTIC FIBROSIS
     Dosage: 150 MG, BID
     Route: 048
     Dates: start: 20120702
  2. AQUADEKS [Concomitant]
  3. PULMOZYME [Concomitant]
  4. PANCREAZE [Concomitant]
  5. PREVACID [Concomitant]
  6. XOPENEX [Concomitant]
  7. HYPER-SAL [Concomitant]
  8. CAYSTON [Concomitant]
     Dosage: 28 ON / 28 OFF

REACTIONS (2)
  - Liver function test abnormal [Unknown]
  - Upper respiratory tract infection [Unknown]
